FAERS Safety Report 8911586 (Version 2)
Quarter: 2012Q4

REPORT INFORMATION
  Report Type: 
  Country: US (occurrence: US)
  Receive Date: 20121115
  Receipt Date: 20121206
  Transmission Date: 20130627
  Serious: Yes (Hospitalization, Other)
  Sender: FDA-Public Use
  Company Number: US-AMGEN-USASP2012072063

PATIENT
  Age: 49 Year
  Sex: Female
  Weight: 37.64 kg

DRUGS (5)
  1. PROLIA [Suspect]
     Indication: OSTEOPOROSIS POSTMENOPAUSAL
     Dosage: 60 mg, one time dose
     Route: 058
     Dates: start: 20120608
  2. VITAMIN D3 [Concomitant]
     Dosage: UNK
  3. ADVAIR [Concomitant]
     Dosage: UNK
  4. ESGIC-PLUS [Concomitant]
  5. ROBAXIN [Concomitant]
     Dosage: UNK

REACTIONS (13)
  - Impaired healing [Not Recovered/Not Resolved]
  - Dizziness [Unknown]
  - Amnesia [Unknown]
  - Foot fracture [Not Recovered/Not Resolved]
  - Weight decreased [Not Recovered/Not Resolved]
  - Chest pain [Unknown]
  - Back pain [Unknown]
  - Musculoskeletal chest pain [Unknown]
  - Gastritis [Unknown]
  - Gastrooesophageal reflux disease [Unknown]
  - Gait disturbance [Not Recovered/Not Resolved]
  - Drug hypersensitivity [Unknown]
  - Pain in extremity [Not Recovered/Not Resolved]
